FAERS Safety Report 12912438 (Version 2)
Quarter: 2016Q4

REPORT INFORMATION
  Report Type: Spontaneous
  Country: SA (occurrence: SA)
  Receive Date: 20161104
  Receipt Date: 20161130
  Transmission Date: 20170207
  Serious: Yes (Death)
  Sender: FDA-Public Use
  Company Number: SA-PFIZER INC-2016509815

PATIENT
  Age: 8 Year
  Sex: Female

DRUGS (3)
  1. CRIZOTINIB [Suspect]
     Active Substance: CRIZOTINIB
     Indication: INFLAMMATORY MYOFIBROBLASTIC TUMOUR
     Dosage: 280 MG/M2, 2X/DAY
     Route: 048
  2. IBUPROFEN. [Concomitant]
     Active Substance: IBUPROFEN
     Indication: INFLAMMATORY MYOFIBROBLASTIC TUMOUR
     Dosage: UNK
  3. ENOXAPARIN [Concomitant]
     Active Substance: ENOXAPARIN
     Indication: INFLAMMATORY MYOFIBROBLASTIC TUMOUR
     Dosage: UNK

REACTIONS (2)
  - Product use issue [Unknown]
  - Acute respiratory distress syndrome [Fatal]
